FAERS Safety Report 15844026 (Version 1)
Quarter: 2019Q1

REPORT INFORMATION
  Report Type: Spontaneous
  Country: CN (occurrence: CN)
  Receive Date: 20190118
  Receipt Date: 20190118
  Transmission Date: 20190417
  Serious: Yes (Other)
  Sender: FDA-Public Use
  Company Number: CN-MYLANLABS-2019M1003711

PATIENT
  Sex: Female

DRUGS (26)
  1. DACTINOMYCIN [Suspect]
     Active Substance: DACTINOMYCIN
     Indication: GESTATIONAL TROPHOBLASTIC TUMOUR
     Dosage: ADMINISTERED ON DAYS 1 AND 2 EVERY 14 DAYS AS PART OF THE EMA-CO REGIMEN
     Route: 042
  2. METHOTREXATE. [Suspect]
     Active Substance: METHOTREXATE
     Dosage: ADMINISTERED ON DAY 1 EVERY 14 DAYS AS PART OF THE EMA-CO REGIMEN
     Route: 042
  3. METHOTREXATE. [Suspect]
     Active Substance: METHOTREXATE
     Dosage: ADMINISTERED ON DAY 1 EVERY 14 DAYS AS PART OF THE EMA-EP REGIMEN
     Route: 042
  4. CYCLOPHOSPHAMIDE. [Suspect]
     Active Substance: CYCLOPHOSPHAMIDE
     Indication: GESTATIONAL TROPHOBLASTIC TUMOUR
     Dosage: ADMINISTERED ON DAY 8 EVERY 14 DAYS AS PART OF THE EMA-CO REGIMEN
     Route: 042
  5. VINCRISTINE [Suspect]
     Active Substance: VINCRISTINE
     Indication: GESTATIONAL TROPHOBLASTIC TUMOUR
     Dosage: ADMINISTERED ON DAY 8 EVERY 14 DAYS AS PART OF THE EMA-CO REGIMEN
     Route: 042
  6. PACLITAXEL. [Suspect]
     Active Substance: PACLITAXEL
     Indication: GESTATIONAL TROPHOBLASTIC TUMOUR
     Dosage: AS PART OF THE TP/TE REGIMEN
     Route: 065
  7. DACTINOMYCIN [Suspect]
     Active Substance: DACTINOMYCIN
     Dosage: AS PART OF THE FAEV REGIMEN
     Route: 065
  8. PACLITAXEL. [Suspect]
     Active Substance: PACLITAXEL
     Dosage: 150 MILLIGRAM/SQ. METER
     Route: 042
  9. ETOPOSIDE. [Suspect]
     Active Substance: ETOPOSIDE
     Dosage: ADMINISTERED ON DAY 8 EVERY 14 DAYS AS PART OF THE EMA-EP REGIMEN
     Route: 042
  10. ETOPOSIDE. [Suspect]
     Active Substance: ETOPOSIDE
     Dosage: AS PART OF THE TP/TE REGIMEN
     Route: 065
  11. VINCRISTINE [Suspect]
     Active Substance: VINCRISTINE
     Dosage: AS PART OF THE MBE REGIMEN
     Route: 065
  12. BLEOMYCIN [Suspect]
     Active Substance: BLEOMYCIN SULFATE
     Indication: GESTATIONAL TROPHOBLASTIC TUMOUR
     Dosage: AS PART OF THE MBE REGIMEN
     Route: 065
  13. DACTINOMYCIN [Suspect]
     Active Substance: DACTINOMYCIN
     Dosage: ADMINISTERED ON DAYS 1 AND 2 EVERY 14 DAYS AS PART OF THE EMA-EP REGIMEN
     Route: 042
  14. METHOTREXATE. [Suspect]
     Active Substance: METHOTREXATE
     Dosage: ADMINISTERED ON DAY 1 EVERY 14 DAYS AS PART OF THE EMA-EP REGIMEN
     Route: 042
  15. ETOPOSIDE. [Suspect]
     Active Substance: ETOPOSIDE
     Dosage: ADMINISTERED ON DAYS 1 AND 2 EVERY 14 DAYS AS PART OF THE EMA-EP REGIMEN
     Route: 042
  16. VINCRISTINE [Suspect]
     Active Substance: VINCRISTINE
     Dosage: AS PART OF THE FAEV REGIMEN
     Route: 065
  17. OXALIPLATIN. [Suspect]
     Active Substance: OXALIPLATIN
     Indication: GESTATIONAL TROPHOBLASTIC TUMOUR
     Dosage: ADMINISTERED ON DAY 1 EVERY 14 DAYS AS PART OF GOP REGIMEN
     Route: 042
  18. METHOTREXATE. [Suspect]
     Active Substance: METHOTREXATE
     Indication: GESTATIONAL TROPHOBLASTIC TUMOUR
     Dosage: ADMINISTERED ON DAY 1 EVERY 14 DAYS AS PART OF THE EMA-CO REGIMEN
     Route: 042
  19. FLUOROURACIL. [Suspect]
     Active Substance: FLUOROURACIL
     Indication: GESTATIONAL TROPHOBLASTIC TUMOUR
     Route: 065
  20. GEMCITABINE [Suspect]
     Active Substance: GEMCITABINE\GEMCITABINE HYDROCHLORIDE
     Indication: GESTATIONAL TROPHOBLASTIC TUMOUR
     Dosage: ADMINISTERED ON DAY 1 EVERY 14 DAYS AS PART OF GOP REGIMEN
     Route: 042
  21. ETOPOSIDE. [Suspect]
     Active Substance: ETOPOSIDE
     Indication: GESTATIONAL TROPHOBLASTIC TUMOUR
     Dosage: ADMINISTERED ON DAYS 1 AND 2 EVERY 14 DAYS AS PART OF THE EMA-CO REGIMEN
     Route: 042
  22. ETOPOSIDE. [Suspect]
     Active Substance: ETOPOSIDE
     Dosage: AS PART OF THE FAEV REGIMEN
     Route: 065
  23. CISPLATIN. [Suspect]
     Active Substance: CISPLATIN
     Indication: GESTATIONAL TROPHOBLASTIC TUMOUR
     Dosage: AS PART OF THE MBE REGIMEN
     Route: 065
  24. CISPLATIN. [Suspect]
     Active Substance: CISPLATIN
     Dosage: AS PART OF THE TP/TE REGIMEN
     Route: 065
  25. CISPLATIN. [Suspect]
     Active Substance: CISPLATIN
     Dosage: ADMINISTERED ON DAY 8 EVERY 14 DAYS AS PART OF THE EMA-EP REGIMEN
     Route: 042
  26. FLOXURIDINE. [Suspect]
     Active Substance: FLOXURIDINE
     Indication: GESTATIONAL TROPHOBLASTIC TUMOUR
     Dosage: AS PART OF THE FAEV REGIMEN
     Route: 065

REACTIONS (1)
  - Drug ineffective [Unknown]
